FAERS Safety Report 5581181-3 (Version None)
Quarter: 2007Q4

REPORT INFORMATION
  Report Type: 
  Country: None (occurrence: None)
  Receive Date: 20071227
  Receipt Date: 20071218
  Transmission Date: 20080405
  Serious: Yes (Hospitalization)
  Sender: FDA-Public Use
  Company Number: 2007SP023826

PATIENT
  Sex: Female
  Weight: 84 kg

DRUGS (4)
  1. PEG-INTRON [Suspect]
     Indication: HEPATITIS C
     Dosage: 1.5 MCG/KG, QW; SC, 0.75 MCG/KG;
     Dates: start: 20071017
  2. RIBAVIRIN [Suspect]
     Indication: HEPATITIS C
     Dosage: 1200 MG; QD; PO
     Route: 048
     Dates: start: 20071101
  3. BLINDED SCH 900518 (S-P) [Suspect]
     Indication: HEPATITIS C
     Dosage: 800 MG; TID; PO, 800 MG; TID; PO
     Route: 048
     Dates: start: 20070912, end: 20070918
  4. BLINDED SCH 900518 (S-P) [Suspect]
     Indication: HEPATITIS C
     Dosage: 800 MG; TID; PO, 800 MG; TID; PO
     Route: 048
     Dates: start: 20071017, end: 20071030

REACTIONS (6)
  - ABSCESS [None]
  - ASTHENIA [None]
  - C-REACTIVE PROTEIN INCREASED [None]
  - MALAISE [None]
  - PYREXIA [None]
  - WEIGHT DECREASED [None]
